FAERS Safety Report 7984284-9 (Version None)
Quarter: 2011Q4

REPORT INFORMATION
  Report Type: 
  Country: None (occurrence: None)
  Receive Date: 20111216
  Receipt Date: 20111206
  Transmission Date: 20120403
  Serious: Yes (Other)
  Sender: FDA-Public Use
  Company Number: DK-JNJFOC-20111202493

PATIENT
  Sex: Male

DRUGS (3)
  1. METHOTREXATE [Concomitant]
     Route: 048
     Dates: start: 20060523, end: 20080116
  2. REMICADE [Suspect]
     Route: 042
     Dates: start: 20060523
  3. REMICADE [Suspect]
     Indication: PSORIATIC ARTHROPATHY
     Route: 042
     Dates: end: 20071215

REACTIONS (3)
  - GAIT DISTURBANCE [None]
  - PAIN [None]
  - PARAESTHESIA [None]
